FAERS Safety Report 10412867 (Version 1)
Quarter: 2014Q2

REPORT INFORMATION
  Report Type: Spontaneous
  Country: US (occurrence: None)
  Receive Date: 20140604
  Receipt Date: 20140604
  Transmission Date: 20141212
  Serious: Yes (Hospitalization)
  Sender: FDA-Public Use
  Company Number: 20120606CINRY3035

PATIENT
  Age: 20 Year
  Sex: Female

DRUGS (2)
  1. CINRYZE [Suspect]
     Indication: PROPHYLAXIS
     Route: 042
  2. CINRYZE [Suspect]
     Route: 042

REACTIONS (8)
  - Hereditary angioedema [None]
  - Angioedema [None]
  - Panic attack [None]
  - Dyspnoea [None]
  - Speech disorder [None]
  - Kidney infection [None]
  - Urinary tract infection [None]
  - Abdominal pain lower [None]
